FAERS Safety Report 10028174 (Version 1)
Quarter: 2014Q1

REPORT INFORMATION
  Report Type: Spontaneous
  Country: US (occurrence: None)
  Receive Date: 20140307
  Receipt Date: 20140307
  Transmission Date: 20141002
  Serious: Yes (Death, Hospitalization)
  Sender: FDA-Public Use
  Company Number: HYP201401-000004

PATIENT
  Age: 71 Year
  Sex: Male
  Weight: 79.38 kg

DRUGS (18)
  1. RAVICTI (GLYCEROL PHENYLBUTYRATE) ORAL LIQUID [Suspect]
     Indication: HYPERAMMONAEMIA
     Route: 048
     Dates: start: 201311, end: 201401
  2. PROGRAF [Concomitant]
  3. CELLCEPT [Concomitant]
  4. COREG [Concomitant]
  5. SODIUM BICARBONATE [Concomitant]
  6. PRILOSEC [Concomitant]
  7. XIFAXAN [Concomitant]
  8. FLOMAX [Concomitant]
  9. FOLIC [Concomitant]
  10. LISINOPRIL [Concomitant]
  11. LEXAPRO [Concomitant]
  12. RITALIN [Concomitant]
  13. MEGESTROL [Concomitant]
  14. LOW-DOSE ASPIRIN [Concomitant]
  15. NOVALOG INSULIN [Concomitant]
  16. LANTUS INSULIN [Concomitant]
  17. MAGNESIUM OXIDE [Concomitant]
  18. TOPROL XL [Concomitant]

REACTIONS (10)
  - Off label use [None]
  - Hyperammonaemia [None]
  - Fatigue [None]
  - Confusional state [None]
  - Nausea [None]
  - Vomiting [None]
  - Weight decreased [None]
  - Decreased appetite [None]
  - Unresponsive to stimuli [None]
  - Renal impairment [None]
